FAERS Safety Report 11885712 (Version 2)
Quarter: 2016Q1

REPORT INFORMATION
  Report Type: Spontaneous
  Country: US (occurrence: US)
  Receive Date: 20160104
  Receipt Date: 20160216
  Transmission Date: 20160526
  Serious: Yes (Other)
  Sender: FDA-Public Use
  Company Number: US-EPIC PHARMA LLC-2015EPC00010

PATIENT
  Age: 72 Year
  Sex: Female
  Weight: 74.83 kg

DRUGS (4)
  1. URSODIOL. [Suspect]
     Active Substance: URSODIOL
     Indication: BILIARY CIRRHOSIS
     Dosage: 300 MG, 3X/DAY
     Route: 048
     Dates: start: 2015, end: 20151210
  2. CLOBETASOL [Concomitant]
     Active Substance: CLOBETASOL
     Dosage: UNK, 2X/DAY
     Route: 061
  3. URSODIOL. [Suspect]
     Active Substance: URSODIOL
     Dosage: UNK
     Dates: start: 201601
  4. ATORVASTATIN [Concomitant]
     Active Substance: ATORVASTATIN
     Dosage: 40 MG, 1X/DAY

REACTIONS (4)
  - Basal cell carcinoma [None]
  - Psoriasis [Not Recovered/Not Resolved]
  - Squamous cell carcinoma of skin [None]
  - Skin cancer [Not Recovered/Not Resolved]

NARRATIVE: CASE EVENT DATE: 201508
